FAERS Safety Report 18329564 (Version 1)
Quarter: 2020Q3

REPORT INFORMATION
  Report Type: Spontaneous
  Country: US (occurrence: US)
  Receive Date: 20200930
  Receipt Date: 20200930
  Transmission Date: 20201103
  Serious: No
  Sender: FDA-Public Use
  Company Number: US-PFIZER INC-2020375664

PATIENT
  Age: 65 Year
  Sex: Male

DRUGS (1)
  1. VYNDAMAX [Suspect]
     Active Substance: TAFAMIDIS
     Indication: CARDIAC AMYLOIDOSIS
     Dosage: UNK

REACTIONS (9)
  - Neuralgia [Unknown]
  - Gastric disorder [Unknown]
  - Carpal tunnel syndrome [Unknown]
  - Aphasia [Unknown]
  - Arthralgia [Unknown]
  - Fatigue [Unknown]
  - Disturbance in attention [Unknown]
  - Dizziness [Unknown]
  - Trigger finger [Unknown]
